FAERS Safety Report 8880217 (Version 4)
Quarter: 2012Q4

REPORT INFORMATION
  Report Type: 
  Country: JP (occurrence: JP)
  Receive Date: 20121031
  Receipt Date: 20121211
  Transmission Date: 20130627
  Serious: Yes (Death)
  Sender: FDA-Public Use
  Company Number: JP-ASTRAZENECA-2012SE81371

PATIENT
  Age: 62 Year
  Sex: Male
  Weight: 36 kg

DRUGS (9)
  1. SEROQUEL [Suspect]
     Indication: SCHIZOPHRENIA
     Route: 048
     Dates: start: 20070903, end: 20120809
  2. SEROQUEL [Suspect]
     Indication: SCHIZOPHRENIA
     Route: 048
     Dates: start: 20070903, end: 20120803
  3. SEROQUEL [Suspect]
     Indication: SCHIZOPHRENIA
     Route: 048
     Dates: start: 20120810, end: 20120810
  4. SEROQUEL [Suspect]
     Indication: SCHIZOPHRENIA
     Route: 048
     Dates: start: 20120804, end: 20120809
  5. LENDEM [Concomitant]
     Indication: SCHIZOPHRENIA
     Dates: start: 20070305
  6. LANSOPRAZOLE [Concomitant]
     Indication: OESOPHAGEAL ULCER
     Dates: start: 20111219
  7. HARTAM [Concomitant]
     Indication: DYSURIA
     Dates: start: 20120330
  8. GASMOTIN [Concomitant]
     Indication: CONSTIPATION
     Dates: start: 20110704
  9. MAGNESIUM OXIDE [Concomitant]
     Indication: CONSTIPATION
     Dates: start: 20111226

REACTIONS (3)
  - Hypoglycaemia [Fatal]
  - Cardiac failure acute [Fatal]
  - Intentional drug misuse [Unknown]
